FAERS Safety Report 6329665-4 (Version None)
Quarter: 2009Q3

REPORT INFORMATION
  Report Type: 
  Country: None (occurrence: None)
  Receive Date: 20090826
  Receipt Date: 20090817
  Transmission Date: 20100115
  Serious: Yes (Other)
  Sender: FDA-Public Use
  Company Number: AU-ROCHE-636081

PATIENT
  Age: 30 Year
  Sex: Female

DRUGS (11)
  1. MYCOPHENOLATE MOFETIL [Suspect]
     Route: 065
  2. ARANESP [Suspect]
     Route: 058
     Dates: start: 20080211
  3. ARANESP [Suspect]
     Dosage: DOSE INCREASED
     Route: 058
     Dates: start: 20090302
  4. ARANESP [Suspect]
     Dosage: DOSE INCREASED
     Route: 058
     Dates: start: 20090311
  5. THYMOGLOBULIN [Concomitant]
     Dates: start: 20080816, end: 20080818
  6. CALCIFEROL [Concomitant]
  7. AZATHIOPRINE [Concomitant]
     Dates: start: 20080101
  8. TACROLIMUS [Concomitant]
  9. PREDNISOLONE [Concomitant]
  10. CALCIDOL B12 [Concomitant]
     Dosage: DRUG NAME: CALCIDOL
  11. SULFAMETHOXAZOLE AND TRIMETHOPRIM [Concomitant]
     Dates: start: 20090105

REACTIONS (2)
  - ANAEMIA [None]
  - APLASIA PURE RED CELL [None]
